FAERS Safety Report 8250931-X (Version None)
Quarter: 2012Q2

REPORT INFORMATION
  Report Type: 
  Country: None (occurrence: None)
  Receive Date: 20120402
  Receipt Date: 20120322
  Transmission Date: 20120825
  Serious: Yes (Other)
  Sender: FDA-Public Use
  Company Number: US-ASTRAZENECA-2011SE27141

PATIENT
  Age: 74 Year
  Sex: Female

DRUGS (1)
  1. NEXIUM [Suspect]
     Route: 048

REACTIONS (5)
  - ULCER [None]
  - DRUG DOSE OMISSION [None]
  - RED BLOOD CELL COUNT ABNORMAL [None]
  - ULCER HAEMORRHAGE [None]
  - DYSPHAGIA [None]
